FAERS Safety Report 20627506 (Version 1)
Quarter: 2022Q1

REPORT INFORMATION
  Report Type: Spontaneous
  Country: US (occurrence: None)
  Receive Date: 20220322
  Receipt Date: 20220322
  Transmission Date: 20220423
  Serious: Yes (Hospitalization)
  Sender: FDA-Public Use
  Company Number: None

PATIENT
  Age: 70 Year
  Sex: Female
  Weight: 41 kg

DRUGS (1)
  1. COLCHICINE [Suspect]
     Active Substance: COLCHICINE
     Indication: Ovarian cancer metastatic
     Dosage: FREQUENCY : TWICE A DAY;?
     Route: 048
     Dates: start: 20220217

REACTIONS (8)
  - Hyponatraemia [None]
  - Mental status changes [None]
  - Confusional state [None]
  - Troponin increased [None]
  - Cerebral ventricle dilatation [None]
  - Vomiting [None]
  - Memory impairment [None]
  - Cerebral disorder [None]

NARRATIVE: CASE EVENT DATE: 20220322
